FAERS Safety Report 8090713-5 (Version None)
Quarter: 2012Q1

REPORT INFORMATION
  Report Type: 
  Country: None (occurrence: None)
  Receive Date: 20120130
  Receipt Date: 20120123
  Transmission Date: 20120608
  Serious: Yes (Hospitalization)
  Sender: FDA-Public Use
  Company Number: US-MERCK-1201USA02076

PATIENT

DRUGS (2)
  1. VANCOMYCIN [Concomitant]
     Route: 065
  2. INVANZ [Suspect]
     Route: 065

REACTIONS (1)
  - ENTEROCOCCAL INFECTION [None]
